FAERS Safety Report 7116978-1 (Version None)
Quarter: 2010Q4

REPORT INFORMATION
  Report Type: 
  Country: None (occurrence: None)
  Receive Date: 20101122
  Receipt Date: 20101102
  Transmission Date: 20110411
  Serious: Yes (Other)
  Sender: FDA-Public Use
  Company Number: US-BAYER-201026841NA

PATIENT
  Age: 39 Year
  Sex: Female
  Weight: 82 kg

DRUGS (11)
  1. YAZ [Suspect]
     Indication: PREMENSTRUAL SYNDROME
     Route: 048
     Dates: start: 20080401, end: 20080601
  2. COUMADIN [Concomitant]
  3. BUTALBITAL-APAP [Concomitant]
     Dates: start: 20080602
  4. DICLOFENAC SODIUM [Concomitant]
     Dates: start: 20080601
  5. DICLOFENAC SODIUM [Concomitant]
     Dates: start: 20080527
  6. LEVAQUIN [Concomitant]
     Dates: start: 20080606
  7. VITAMIN B COMPLEX CAP [Concomitant]
  8. ADVIL [Concomitant]
     Indication: PAIN
  9. BUSPIRONE HCL [Concomitant]
     Indication: ANXIETY
     Dates: start: 20080327
  10. TOPAMAX [Concomitant]
     Indication: MIGRAINE PROPHYLAXIS
     Dates: start: 20080626
  11. DIETARY SUPPLEMENTS NOS [Concomitant]
     Dosage: 20 DAYS PRIOR TO EVENT

REACTIONS (7)
  - DEEP VEIN THROMBOSIS [None]
  - HEADACHE [None]
  - LIMB DISCOMFORT [None]
  - MIGRAINE [None]
  - OEDEMA PERIPHERAL [None]
  - PAIN IN EXTREMITY [None]
  - VOMITING [None]
